FAERS Safety Report 10182928 (Version 5)
Quarter: 2017Q4

REPORT INFORMATION
  Report Type: Spontaneous
  Country: US (occurrence: US)
  Receive Date: 20140520
  Receipt Date: 20171211
  Transmission Date: 20180320
  Serious: Yes (Hospitalization, Other)
  Sender: FDA-Public Use
  Company Number: US-PFIZER INC-2014134612

PATIENT
  Age: 52 Year
  Sex: Female

DRUGS (2)
  1. RAPAMUNE [Suspect]
     Active Substance: SIROLIMUS
     Dosage: 2 MG, DAILY
     Dates: start: 201103
  2. RAPAMUNE [Suspect]
     Active Substance: SIROLIMUS
     Indication: LYMPHANGIOLEIOMYOMATOSIS
     Dosage: 3 MG, 1X/DAY
     Dates: start: 2011

REACTIONS (9)
  - Off label use [Unknown]
  - Dyspnoea [Unknown]
  - Herpes zoster [Unknown]
  - Nasopharyngitis [Unknown]
  - Post herpetic neuralgia [Unknown]
  - Sleep disorder [Unknown]
  - Breast cancer [Unknown]
  - Fatigue [Unknown]
  - Myalgia [Unknown]

NARRATIVE: CASE EVENT DATE: 2009
